FAERS Safety Report 4274657-2 (Version None)
Quarter: 2004Q1

REPORT INFORMATION
  Report Type: 
  Country: None (occurrence: None)
  Receive Date: 20040120
  Receipt Date: 20031010
  Transmission Date: 20041129
  Serious: Yes (Hospitalization)
  Sender: FDA-Public Use
  Company Number: JP-BRISTOL-MYERS SQUIBB COMPANY-12409645

PATIENT
  Age: 51 Year
  Sex: Female

DRUGS (1)
  1. TAXOL [Suspect]
     Indication: BREAST CANCER
     Dosage: THERAPY DATES: 29-JUL-2003
     Route: 042
     Dates: start: 20030801, end: 20030801

REACTIONS (2)
  - PLEURAL EFFUSION [None]
  - RESPIRATORY FAILURE [None]
